FAERS Safety Report 25387447 (Version 2)
Quarter: 2025Q3

REPORT INFORMATION
  Report Type: Report from Study
  Country: US (occurrence: US)
  Receive Date: 20250602
  Receipt Date: 20250802
  Transmission Date: 20251021
  Serious: Yes (Hospitalization, Other)
  Sender: ALEXION PHARMACEUTICALS
  Company Number: US-AstraZeneca-CH-00881813A

PATIENT
  Sex: Female

DRUGS (1)
  1. FASENRA [Suspect]
     Active Substance: BENRALIZUMAB
     Route: 065

REACTIONS (7)
  - Cerebrovascular accident [Unknown]
  - Cerebral disorder [Unknown]
  - Atrial fibrillation [Unknown]
  - Atrial flutter [Unknown]
  - Full blood count abnormal [Unknown]
  - COVID-19 [Unknown]
  - Cough [Unknown]
